FAERS Safety Report 18343238 (Version 1)
Quarter: 2020Q4

REPORT INFORMATION
  Report Type: Spontaneous
  Country: US (occurrence: US)
  Receive Date: 20201003
  Receipt Date: 20201003
  Transmission Date: 20210113
  Serious: No
  Sender: FDA-Public Use
  Company Number: None

PATIENT
  Age: 31 Year
  Sex: Female
  Weight: 63 kg

DRUGS (6)
  1. AJOVY [Suspect]
     Active Substance: FREMANEZUMAB-VFRM
     Indication: MIGRAINE
     Dosage: ?          QUANTITY:1 INJECTION(S);OTHER FREQUENCY:1 INJECTION/MONTH;?
     Route: 058
     Dates: start: 20200827
  2. MAGNESIUM SUPPLEMENT [Concomitant]
     Active Substance: MAGNESIUM
  3. CPAP [Concomitant]
     Active Substance: DEVICE
  4. PROPRANOLOL [Concomitant]
     Active Substance: PROPRANOLOL HYDROCHLORIDE
  5. SUMATRIPTAN. [Concomitant]
     Active Substance: SUMATRIPTAN
  6. IRON SUPPLEMENT [Concomitant]
     Active Substance: IRON

REACTIONS (2)
  - Alopecia [None]
  - Weight increased [None]
